FAERS Safety Report 6838997-2 (Version None)
Quarter: 2010Q3

REPORT INFORMATION
  Report Type: 
  Country: None (occurrence: None)
  Receive Date: 20100713
  Receipt Date: 20090403
  Transmission Date: 20110219
  Serious: No
  Sender: FDA-Public Use
  Company Number: US-PFIZER INC-2007051249

PATIENT
  Sex: Male
  Weight: 122.5 kg

DRUGS (5)
  1. CHANTIX [Suspect]
     Indication: SMOKING CESSATION THERAPY
     Dosage: 1 MG, 1X/DAY
     Route: 048
     Dates: start: 20070607
  2. PAXIL [Concomitant]
  3. TRANXENE [Concomitant]
  4. CRESTOR [Concomitant]
  5. IBUPROFEN [Concomitant]

REACTIONS (2)
  - DRUG EFFECT DECREASED [None]
  - NAUSEA [None]
